FAERS Safety Report 15888936 (Version 1)
Quarter: 2019Q1

REPORT INFORMATION
  Report Type: Spontaneous
  Country: SI (occurrence: SI)
  Receive Date: 20190130
  Receipt Date: 20190130
  Transmission Date: 20190417
  Serious: Yes (Hospitalization)
  Sender: FDA-Public Use
  Company Number: SI-TEVA-2019-SI-1004607

PATIENT
  Age: 73 Year
  Sex: Female

DRUGS (8)
  1. NEXIUM [Concomitant]
     Active Substance: ESOMEPRAZOLE MAGNESIUM
  2. EXELON 9.5 MG/24 H [Concomitant]
     Dosage: 9,5MG/24H
  3. TERTENSIF SR 1,5 MG [Concomitant]
  4. MIRZATEN 45 MG [Concomitant]
  5. DULSEVIA 60 MG [Concomitant]
  6. NEBILET 5 MG [Concomitant]
  7. GEMCITABIN ACTAVIS 38 MG/ML [Suspect]
     Active Substance: GEMCITABINE HYDROCHLORIDE
     Indication: PANCREATIC CARCINOMA
     Route: 042
     Dates: start: 20180813, end: 20181217
  8. TELFAST 120 MG [Concomitant]

REACTIONS (2)
  - Cardiac failure acute [Unknown]
  - Tubulointerstitial nephritis [Unknown]

NARRATIVE: CASE EVENT DATE: 20190106
